FAERS Safety Report 16987453 (Version 1)
Quarter: 2019Q4

REPORT INFORMATION
  Report Type: Spontaneous
  Country: US (occurrence: US)
  Receive Date: 20191104
  Receipt Date: 20191104
  Transmission Date: 20200122
  Serious: Yes (Life-Threatening, Other)
  Sender: FDA-Public Use
  Company Number: US-B.I. PHARMACEUTICALS,INC./RIDGEFIELD-2019-BI-111180

PATIENT
  Age: 10 Year
  Sex: Male

DRUGS (8)
  1. THEOPHYLLINE [Concomitant]
     Active Substance: THEOPHYLLINE ANHYDROUS
     Indication: BRONCHOSPASM
     Dosage: INFUSION; 1.6 MG/KG/HR
     Route: 065
  2. ALBUTEROL [SALBUTAMOL] [Concomitant]
     Active Substance: ALBUTEROL
     Indication: BRONCHOSPASM
     Dosage: NEBULIZATION
     Route: 065
  3. TERBUTALINE [Concomitant]
     Active Substance: TERBUTALINE
     Indication: BRONCHOSPASM
     Dosage: INFUSION; 4 MCG/KG/MIN
     Route: 065
  4. KETAMINE [Concomitant]
     Active Substance: KETAMINE
     Indication: BRONCHOSPASM
     Dosage: INFUSION;
     Route: 065
  5. METHYLPREDNISOLONE. [Concomitant]
     Active Substance: METHYLPREDNISOLONE
     Indication: BRONCHOSPASM
     Route: 042
  6. ATROVENT [Suspect]
     Active Substance: IPRATROPIUM BROMIDE
     Indication: BRONCHOSPASM
     Dosage: NEBULIZATION
     Route: 055
  7. MAGNESIUM [Concomitant]
     Active Substance: MAGNESIUM
     Indication: BRONCHOSPASM
     Dosage: INFUSION
     Route: 065
  8. ISOFLURANE. [Concomitant]
     Active Substance: ISOFLURANE
     Indication: PRODUCT USED FOR UNKNOWN INDICATION
     Route: 065

REACTIONS (3)
  - Bronchospasm [Recovering/Resolving]
  - Wolff-Parkinson-White syndrome [Unknown]
  - Ventricular tachycardia [Recovered/Resolved]
